FAERS Safety Report 15059034 (Version 2)
Quarter: 2018Q3

REPORT INFORMATION
  Report Type: Spontaneous
  Country: US (occurrence: US)
  Receive Date: 20180625
  Receipt Date: 20180702
  Transmission Date: 20181010
  Serious: Yes (Hospitalization, Other)
  Sender: FDA-Public Use
  Company Number: US-SAKK-2018SA159620AA

PATIENT
  Age: 75 Year
  Sex: Female
  Weight: 89.35 kg

DRUGS (1)
  1. PRALUENT [Suspect]
     Active Substance: ALIROCUMAB
     Indication: TYPE IIA HYPERLIPIDAEMIA
     Dosage: 1 ML, QOW
     Route: 058

REACTIONS (5)
  - Hospitalisation [Unknown]
  - Urethral obstruction [Unknown]
  - Nephrolithiasis [Unknown]
  - Sepsis [Unknown]
  - Stent placement [Unknown]

NARRATIVE: CASE EVENT DATE: 20180607
